FAERS Safety Report 10265640 (Version 1)
Quarter: 2014Q2

REPORT INFORMATION
  Report Type: Spontaneous
  Country: PL (occurrence: PL)
  Receive Date: 20140627
  Receipt Date: 20140627
  Transmission Date: 20141212
  Serious: Yes (Other)
  Sender: FDA-Public Use
  Company Number: PHHY2014PL075938

PATIENT
  Sex: Male
  Weight: 70 kg

DRUGS (4)
  1. FLUOROURACIL EBEWE [Suspect]
     Dosage: 730 MG, UNK
     Route: 042
     Dates: start: 20130102, end: 20130308
  2. FLUOROURACIL EBEWE [Suspect]
     Dosage: 1086 MG, UNK
     Route: 042
     Dates: start: 20130102, end: 20130308
  3. IRINOTECAN [Suspect]
     Indication: RECTAL CANCER
     Dosage: 250 MG, UNK
     Route: 042
     Dates: start: 20130102, end: 20130308
  4. LEVOFOLINATE [Suspect]
     Dosage: 180 MG, UNK
     Route: 042
     Dates: start: 20130102, end: 20130608

REACTIONS (2)
  - Body mass index decreased [Not Recovered/Not Resolved]
  - Asthenia [Not Recovered/Not Resolved]
